FAERS Safety Report 24874064 (Version 1)
Quarter: 2025Q1

REPORT INFORMATION
  Report Type: Spontaneous
  Country: US (occurrence: None)
  Receive Date: 20250121
  Receipt Date: 20250121
  Transmission Date: 20250408
  Serious: Yes (Other)
  Sender: FDA-CTU
  Company Number: None

PATIENT
  Age: 64 Year
  Sex: Male
  Weight: 90 kg

DRUGS (5)
  1. QVAR REDIHALER [Suspect]
     Active Substance: BECLOMETHASONE DIPROPIONATE
     Indication: Dyspnoea
     Dosage: TWICE A DAY  RESPIRATHOR (INHALATION)
     Route: 055
     Dates: start: 20250113, end: 20250114
  2. ROSUVASTATIN [Concomitant]
     Active Substance: ROSUVASTATIN
  3. FENOFIBRATE [Concomitant]
     Active Substance: FENOFIBRATE
  4. LINZESS [Concomitant]
     Active Substance: LINACLOTIDE
  5. Dovato tabs [Concomitant]

REACTIONS (3)
  - Chest discomfort [None]
  - Muscle tightness [None]
  - Dyspnoea [None]

NARRATIVE: CASE EVENT DATE: 20250113
